FAERS Safety Report 5227736-7 (Version None)
Quarter: 2007Q1

REPORT INFORMATION
  Report Type: 
  Country: None (occurrence: None)
  Receive Date: 20070202
  Receipt Date: 20070119
  Transmission Date: 20070707
  Serious: Yes (Life-Threatening, Hospitalization)
  Sender: FDA-Public Use
  Company Number: GB-PFIZER INC-2007008052

PATIENT
  Age: 73 Year
  Sex: Male

DRUGS (8)
  1. CELEBREX [Suspect]
     Route: 048
     Dates: start: 20040210, end: 20060518
  2. ADCAL-D3 [Concomitant]
     Route: 048
  3. ACETAMINOPHEN AND CODEINE PHOSPHATE [Concomitant]
     Route: 048
  4. FLUTICASONE PROPIONATE [Concomitant]
     Route: 055
  5. IPRATROPIUM BROMIDE [Concomitant]
     Route: 055
  6. MONTELUKAST [Concomitant]
     Route: 048
  7. PREDNISOLONE [Concomitant]
     Route: 048
  8. SALMETEROL [Concomitant]
     Route: 055

REACTIONS (2)
  - ACUTE MYOCARDIAL INFARCTION [None]
  - THROMBOLYSIS [None]
